FAERS Safety Report 25223582 (Version 1)
Quarter: 2025Q2

REPORT INFORMATION
  Report Type: Spontaneous
  Country: FR (occurrence: FR)
  Receive Date: 20250422
  Receipt Date: 20250422
  Transmission Date: 20250716
  Serious: Yes (Hospitalization, Other)
  Sender: AUROBINDO
  Company Number: FR-AFSSAPS-PO2025000362

PATIENT
  Age: 59 Year
  Sex: Male
  Weight: 83 kg

DRUGS (1)
  1. PANTOPRAZOLE [Suspect]
     Active Substance: PANTOPRAZOLE
     Indication: Gastrooesophageal reflux disease
     Dosage: 40 MILLIGRAM, ONCE A DAY
     Route: 048
     Dates: start: 20250220, end: 20250227

REACTIONS (1)
  - Acute febrile neutrophilic dermatosis [Recovered/Resolved]

NARRATIVE: CASE EVENT DATE: 20250225
